FAERS Safety Report 6764238-0 (Version None)
Quarter: 2010Q2

REPORT INFORMATION
  Report Type: 
  Country: None (occurrence: None)
  Receive Date: 20100608
  Receipt Date: 20100506
  Transmission Date: 20101027
  Serious: Yes (Hospitalization)
  Sender: FDA-Public Use
  Company Number: 2010-1707

PATIENT
  Age: 68 Year
  Sex: Male

DRUGS (1)
  1. APO-GO PFS (APO-GO) (APOMORPHINE HYDROCHLORIDE) (APOMORPHINE HYDROCHLO [Suspect]
     Indication: PARKINSON'S DISEASE
     Dosage: 20 HOURS/DAY CONTINUOUS INJECTION (20 HOURS/DAY CONTINUOUS INJECTION),SUBCUTANEOUS
     Route: 058
     Dates: start: 20100216

REACTIONS (4)
  - ABASIA [None]
  - CONDITION AGGRAVATED [None]
  - PARKINSON'S DISEASE [None]
  - UNDERDOSE [None]
